FAERS Safety Report 6328639-7 (Version None)
Quarter: 2009Q3

REPORT INFORMATION
  Report Type: 
  Country: None (occurrence: None)
  Receive Date: 20090825
  Receipt Date: 20090825
  Transmission Date: 20100115
  Serious: Yes (Other)
  Sender: FDA-Public Use
  Company Number: None

PATIENT
  Sex: Male

DRUGS (1)
  1. DEPAKOTE ER [Suspect]
     Indication: BIPOLAR DISORDER
     Dosage: 2500 MG DAILY PO
     Route: 048

REACTIONS (6)
  - ABDOMINAL DISCOMFORT [None]
  - ANGER [None]
  - DIARRHOEA [None]
  - IRRITABILITY [None]
  - NAUSEA [None]
  - PRODUCT SUBSTITUTION ISSUE [None]
